FAERS Safety Report 19503323 (Version 3)
Quarter: 2021Q4

REPORT INFORMATION
  Report Type: Report from Study
  Country: None (occurrence: BR)
  Receive Date: 20210707
  Receipt Date: 20211006
  Transmission Date: 20220303
  Serious: Yes (Hospitalization)
  Sender: FDA-Public Use
  Company Number: BR-ABBVIE-21K-020-3977394-00

PATIENT
  Age: 45 Year
  Sex: Female
  Weight: 59 kg

DRUGS (5)
  1. RINVOQ [Suspect]
     Active Substance: UPADACITINIB
     Indication: Rheumatoid arthritis
     Dosage: 1 TABLET A DAY
     Route: 048
     Dates: start: 20210517, end: 20210605
  2. RINVOQ [Suspect]
     Active Substance: UPADACITINIB
     Dosage: 1 TABLET A DAY
     Route: 048
     Dates: start: 20210625
  3. METHOTREXATE [Concomitant]
     Active Substance: METHOTREXATE
     Indication: Rheumatoid arthritis
     Dosage: UNSPECIFIED DOSE
  4. FOLIC ACID [Concomitant]
     Active Substance: FOLIC ACID
     Indication: Rheumatoid arthritis
     Dosage: UNSPECIFIED DOSE
  5. PRELONE [Concomitant]
     Active Substance: PREDNISOLONE
     Indication: Rheumatoid arthritis
     Route: 048

REACTIONS (8)
  - COVID-19 [Recovered/Resolved]
  - Oxygen saturation decreased [Recovered/Resolved]
  - Lung disorder [Recovered/Resolved]
  - Immune system disorder [Recovered/Resolved]
  - Alopecia [Recovering/Resolving]
  - Pneumonia [Recovered/Resolved]
  - Unevaluable event [Unknown]
  - Sinusitis [Recovered/Resolved]

NARRATIVE: CASE EVENT DATE: 20210101
